FAERS Safety Report 16261624 (Version 2)
Quarter: 2019Q4

REPORT INFORMATION
  Report Type: Spontaneous
  Country: US (occurrence: US)
  Receive Date: 20190501
  Receipt Date: 20191025
  Transmission Date: 20200122
  Serious: No
  Sender: FDA-Public Use
  Company Number: US-LEXICON PHARMACEUTICALS, INC-19-1606-00452

PATIENT
  Sex: Male

DRUGS (3)
  1. XERMELO [Suspect]
     Active Substance: TELOTRISTAT ETHYL
     Indication: CARCINOID SYNDROME
     Route: 048
     Dates: start: 20181231
  2. XERMELO [Suspect]
     Active Substance: TELOTRISTAT ETHYL
  3. XERMELO [Suspect]
     Active Substance: TELOTRISTAT ETHYL
     Dates: start: 20190601

REACTIONS (2)
  - Constipation [Unknown]
  - Product dose omission [Recovered/Resolved]
